FAERS Safety Report 10128497 (Version 2)
Quarter: 2014Q2

REPORT INFORMATION
  Report Type: Spontaneous
  Country: GB (occurrence: GB)
  Receive Date: 20140428
  Receipt Date: 20140523
  Transmission Date: 20141212
  Serious: Yes (Life-Threatening, Hospitalization, Other)
  Sender: FDA-Public Use
  Company Number: GB-RANBAXY-2014RR-80653

PATIENT
  Age: 92 Year
  Sex: Female

DRUGS (6)
  1. AMOXICILLINE [Suspect]
     Indication: LOWER RESPIRATORY TRACT INFECTION
     Dosage: 250MG/5ML
     Route: 048
     Dates: start: 20130902
  2. AMOXICILLINE [Suspect]
     Indication: LOWER RESPIRATORY TRACT INFECTION
     Dosage: 250MG/5ML
     Route: 048
     Dates: start: 20130926, end: 20131003
  3. CALCICHEW D3 [Concomitant]
     Indication: PRODUCT USED FOR UNKNOWN INDICATION
     Dosage: 1 DF, QD, FORTE
     Route: 065
  4. FLECAINIDE [Concomitant]
     Indication: PRODUCT USED FOR UNKNOWN INDICATION
     Dosage: 50 MG, BID
     Route: 065
  5. NITROFURANTOIN [Concomitant]
     Indication: PRODUCT USED FOR UNKNOWN INDICATION
     Dosage: 50 MG, LONG TERM
     Route: 065
  6. PARACETAMOL [Concomitant]
     Indication: PRODUCT USED FOR UNKNOWN INDICATION
     Dosage: UNK
     Route: 065

REACTIONS (6)
  - Treatment failure [Unknown]
  - Pneumonia [Recovered/Resolved]
  - Cough [Recovered/Resolved]
  - Crepitations [Recovered/Resolved]
  - Medication error [Unknown]
  - Systemic inflammatory response syndrome [Recovered/Resolved]
